FAERS Safety Report 20139856 (Version 2)
Quarter: 2022Q3

REPORT INFORMATION
  Report Type: Report from Study
  Country: BR (occurrence: BR)
  Receive Date: 20211202
  Receipt Date: 20220704
  Transmission Date: 20221026
  Serious: Yes (Other)
  Sender: FDA-Public Use
  Company Number: BR-ABBVIE-21K-020-4177724-00

PATIENT
  Age: 30 Year
  Sex: Male
  Weight: 68 kg

DRUGS (3)
  1. SKYRIZI [Suspect]
     Active Substance: RISANKIZUMAB-RZAA
     Indication: Psoriasis
     Dosage: 2 SYRINGES EACH 4 WEEKS
     Route: 058
     Dates: start: 20210618
  2. SKYRIZI [Suspect]
     Active Substance: RISANKIZUMAB-RZAA
     Route: 058
  3. PAROXETINE [Concomitant]
     Active Substance: PAROXETINE
     Indication: Depression
     Dosage: ONCE A DAY
     Route: 048

REACTIONS (7)
  - Poor peripheral circulation [Not Recovered/Not Resolved]
  - Dermatitis allergic [Unknown]
  - Hypersensitivity [Unknown]
  - Muscle rigidity [Not Recovered/Not Resolved]
  - Dermatitis atopic [Unknown]
  - Drug ineffective [Unknown]
  - Psoriasis [Unknown]

NARRATIVE: CASE EVENT DATE: 20210620
